FAERS Safety Report 10647418 (Version 2)
Quarter: 2014Q4

REPORT INFORMATION
  Report Type: Spontaneous
  Country: JP (occurrence: JP)
  Receive Date: 20141211
  Receipt Date: 20141211
  Transmission Date: 20150529
  Serious: Yes (Other)
  Sender: FDA-Public Use
  Company Number: JP-PFIZER INC-2014340813

PATIENT
  Sex: Female

DRUGS (1)
  1. MIGLITOL. [Suspect]
     Active Substance: MIGLITOL
     Dosage: UNK UNK, DAILY
     Route: 048

REACTIONS (1)
  - Loss of consciousness [Unknown]
